FAERS Safety Report 10361070 (Version 1)
Quarter: 2014Q3

REPORT INFORMATION
  Report Type: Spontaneous
  Country: BR (occurrence: BR)
  Receive Date: 20140804
  Receipt Date: 20140804
  Transmission Date: 20150326
  Serious: Yes (Hospitalization)
  Sender: FDA-Public Use
  Company Number: BR-009507513-1408BRA000408

PATIENT
  Sex: Female
  Weight: 65 kg

DRUGS (1)
  1. NUVARING [Suspect]
     Active Substance: ETHINYL ESTRADIOL\ETONOGESTREL
     Indication: CONTRACEPTION
     Dosage: UNK
     Route: 067
     Dates: start: 2008

REACTIONS (10)
  - Uterine leiomyoma [Not Recovered/Not Resolved]
  - Thyroid cyst [Not Recovered/Not Resolved]
  - Drug administration error [Unknown]
  - Benign breast neoplasm [Recovered/Resolved]
  - Dysmenorrhoea [Not Recovered/Not Resolved]
  - Incorrect drug administration duration [Unknown]
  - Breast cyst excision [Recovered/Resolved]
  - Allergic respiratory symptom [Not Recovered/Not Resolved]
  - Emotional disorder [Not Recovered/Not Resolved]
  - Migraine [Not Recovered/Not Resolved]

NARRATIVE: CASE EVENT DATE: 2011
